FAERS Safety Report 11168048 (Version 1)
Quarter: 2015Q2

REPORT INFORMATION
  Report Type: Spontaneous
  Country: US (occurrence: None)
  Receive Date: 20150604
  Receipt Date: 20150604
  Transmission Date: 20150821
  Serious: Yes (Hospitalization)
  Sender: FDA-Public Use
  Company Number: None

PATIENT
  Age: 46 Year
  Sex: Male
  Weight: 116 kg

DRUGS (1)
  1. OXALIPLATIN 100MG [Suspect]
     Active Substance: OXALIPLATIN
     Indication: COLON CANCER
     Dosage: 210 MG, EVERY 2 WEEKS
     Route: 042

REACTIONS (6)
  - Dyspnoea [None]
  - Chest pain [None]
  - Nausea [None]
  - Tremor [None]
  - Palpitations [None]
  - Vomiting [None]

NARRATIVE: CASE EVENT DATE: 20150511
